FAERS Safety Report 5419015-X (Version None)
Quarter: 2007Q3

REPORT INFORMATION
  Report Type: 
  Country: None (occurrence: None)
  Receive Date: 20070817
  Receipt Date: 20070809
  Transmission Date: 20080115
  Serious: Yes (Death)
  Sender: FDA-Public Use
  Company Number: FR-PFIZER INC-2007067038

PATIENT
  Sex: Female

DRUGS (4)
  1. TAHOR [Suspect]
     Indication: HYPERCHOLESTEROLAEMIA
     Route: 048
  2. XANAX [Suspect]
     Route: 048
     Dates: start: 20070402, end: 20070502
  3. ESPERAL [Suspect]
     Indication: ALCOHOLISM
     Route: 048
     Dates: start: 20070402, end: 20070502
  4. AOTAL [Suspect]
     Indication: ALCOHOLISM
     Route: 048
     Dates: start: 20070402, end: 20070502

REACTIONS (1)
  - HEPATITIS FULMINANT [None]
